FAERS Safety Report 21783626 (Version 1)
Quarter: 2022Q4

REPORT INFORMATION
  Report Type: Report from Study
  Country: EG (occurrence: EG)
  Receive Date: 20221227
  Receipt Date: 20221227
  Transmission Date: 20230113
  Serious: Yes (Other)
  Sender: FDA-Public Use
  Company Number: EG-002147023-NVSC2022EG295610

PATIENT
  Age: 10 Year
  Sex: Female

DRUGS (2)
  1. OMNITROPE [Suspect]
     Active Substance: SOMATROPIN
     Indication: Growth hormone deficiency
     Dosage: 1 MG, QD (10 MG/1.5ML) (STOP DATE:  MAYBE SINCE 15 DAYS AGO)
     Route: 058
     Dates: start: 20201126
  2. OMNITROPE [Suspect]
     Active Substance: SOMATROPIN
     Dosage: 1 MG, QD (5 MG/1.5ML) (START DATE:  MAYBE SINCE 15 DAYS AGO)
     Route: 058
     Dates: start: 20221201

REACTIONS (9)
  - Vitamin D deficiency [Recovering/Resolving]
  - Device leakage [Recovered/Resolved]
  - Expired device used [Recovered/Resolved]
  - Poor quality device used [Recovered/Resolved]
  - Poor quality device used [Not Recovered/Not Resolved]
  - Wrong technique in product usage process [Not Recovered/Not Resolved]
  - Wrong technique in device usage process [Not Recovered/Not Resolved]
  - Incorrect dose administered [Recovered/Resolved]
  - Incorrect dose administered [Not Recovered/Not Resolved]

NARRATIVE: CASE EVENT DATE: 20201126
